FAERS Safety Report 19537760 (Version 1)
Quarter: 2021Q3

REPORT INFORMATION
  Report Type: Spontaneous
  Country: US (occurrence: US)
  Receive Date: 20210714
  Receipt Date: 20210714
  Transmission Date: 20211014
  Serious: Yes (Hospitalization)
  Sender: FDA-Public Use
  Company Number: None

PATIENT
  Age: 31 Year
  Sex: Female
  Weight: 78.4 kg

DRUGS (2)
  1. LEVETIRACETAM 500MG [Suspect]
     Active Substance: LEVETIRACETAM
     Indication: EPILEPSY
     Dosage: 300MG 2.5 TAB BID ORAL?TREATMENT START DATE: 08?AUG?2021
     Route: 048
  2. KEPPRA [Concomitant]
     Active Substance: LEVETIRACETAM

REACTIONS (4)
  - Irritability [None]
  - Product substitution issue [None]
  - Depression [None]
  - Seizure [None]

NARRATIVE: CASE EVENT DATE: 20100808
